FAERS Safety Report 6342712-9 (Version None)
Quarter: 2009Q3

REPORT INFORMATION
  Report Type: 
  Country: None (occurrence: None)
  Receive Date: 20090908
  Receipt Date: 20090826
  Transmission Date: 20100115
  Serious: Yes (Hospitalization, Other)
  Sender: FDA-Public Use
  Company Number: FR-BRACCO-000250

PATIENT
  Age: 45 Year
  Sex: Male

DRUGS (2)
  1. IOPAMIDOL [Suspect]
     Indication: PULMONARY EMBOLISM
     Route: 042
     Dates: start: 20090422, end: 20090422
  2. IOPAMIDOL [Suspect]
     Indication: ANGIOGRAM PULMONARY
     Route: 042
     Dates: start: 20090422, end: 20090422

REACTIONS (3)
  - EXTRAVASATION [None]
  - INJECTION SITE IRRITATION [None]
  - LOCAL SWELLING [None]
